FAERS Safety Report 10019719 (Version 1)
Quarter: 2014Q1

REPORT INFORMATION
  Report Type: Spontaneous
  Country: US (occurrence: US)
  Receive Date: 20140318
  Receipt Date: 20140318
  Transmission Date: 20141002
  Serious: No
  Sender: FDA-Public Use
  Company Number: US-GALDERMA-US14000380

PATIENT
  Sex: Female

DRUGS (3)
  1. MIRVASO (BRIMONIDINE) TOPICAL GEL, 0.33% [Suspect]
     Indication: ROSACEA
     Dosage: 0.33%
     Route: 061
     Dates: start: 20131125, end: 201312
  2. FINACEA (AZELAIC ACID) [Suspect]
     Indication: ROSACEA
     Route: 061
  3. SYNTHROID (LEVOTHYROXINE) [Concomitant]
     Route: 048

REACTIONS (2)
  - Rebound effect [Recovered/Resolved]
  - Flushing [Recovered/Resolved]
